FAERS Safety Report 4955884-5 (Version None)
Quarter: 2006Q1

REPORT INFORMATION
  Report Type: 
  Country: None (occurrence: None)
  Receive Date: 20060327
  Receipt Date: 20060327
  Transmission Date: 20060701
  Serious: Yes (Hospitalization)
  Sender: FDA-Public Use
  Company Number: None

PATIENT
  Age: 77 Year
  Sex: Female
  Weight: 47.6277 kg

DRUGS (12)
  1. ERBITUX [Suspect]
     Indication: NON-SMALL CELL LUNG CANCER
     Dates: start: 20060316
  2. ERBITUX [Suspect]
     Indication: NON-SMALL CELL LUNG CANCER
     Dates: start: 20060323
  3. NAVELBINE [Suspect]
     Dates: start: 20060316
  4. NAVELBINE [Suspect]
     Dates: start: 20060323
  5. MODURETIC 5-50 [Concomitant]
  6. DIGOXIN [Concomitant]
  7. ATENOLOL [Concomitant]
  8. ECOTRIN [Concomitant]
  9. EVISTA [Concomitant]
  10. CITROCAL [Concomitant]
  11. VIT C [Concomitant]
  12. VIT E [Concomitant]

REACTIONS (2)
  - ABDOMINAL PAIN [None]
  - HAEMATOCHEZIA [None]
